FAERS Safety Report 16384606 (Version 3)
Quarter: 2019Q3

REPORT INFORMATION
  Report Type: Spontaneous
  Country: AU (occurrence: AU)
  Receive Date: 20190603
  Receipt Date: 20190724
  Transmission Date: 20191004
  Serious: Yes (Hospitalization, Other)
  Sender: FDA-Public Use
  Company Number: AU-JNJFOC-20190600127

PATIENT
  Sex: Male

DRUGS (3)
  1. RIVAROXABAN [Suspect]
     Active Substance: RIVAROXABAN
     Indication: PULMONARY EMBOLISM
     Route: 048
     Dates: start: 2014
  2. CORTIZONE                          /00028601/ [Concomitant]
     Active Substance: HYDROCORTISONE
  3. AMIODARONE [Concomitant]
     Active Substance: AMIODARONE

REACTIONS (7)
  - Vasculitic rash [Unknown]
  - Cardiac failure [Unknown]
  - Road traffic accident [Unknown]
  - Flank pain [Unknown]
  - Rash [Recovered/Resolved]
  - Skin ulcer [Recovered/Resolved]
  - Dyskinesia [Unknown]

NARRATIVE: CASE EVENT DATE: 2015
